FAERS Safety Report 16619557 (Version 2)
Quarter: 2019Q3

REPORT INFORMATION
  Report Type: Spontaneous
  Country: US (occurrence: US)
  Receive Date: 20190723
  Receipt Date: 20190910
  Transmission Date: 20191004
  Serious: No
  Sender: FDA-Public Use
  Company Number: US-BAUSCH-BL-2019-019394

PATIENT
  Sex: Male
  Weight: 97.61 kg

DRUGS (7)
  1. RHOPRESSA [Concomitant]
     Active Substance: NETARSUDIL MESYLATE
     Indication: PRODUCT USED FOR UNKNOWN INDICATION
     Route: 047
     Dates: start: 20190702
  2. LUMIGAN [Concomitant]
     Active Substance: BIMATOPROST
     Indication: PRODUCT USED FOR UNKNOWN INDICATION
     Route: 047
     Dates: start: 20190702
  3. SOOTHE XP [Suspect]
     Active Substance: LIGHT MINERAL OIL\MINERAL OIL
     Dosage: ONE DROP IN EACH EYE AS NEEDED; ONE MONTH AGO FROM THE DATE OF INITIAL REPORT
     Route: 047
     Dates: start: 2019
  4. TIMOLOL GEL FORMING SOLUTION [Suspect]
     Active Substance: TIMOLOL
     Indication: GLAUCOMA
     Dosage: ONE DROP IN EACH EYE; STARTED IN 1994 OR 1995
     Route: 047
     Dates: end: 20190703
  5. SOOTHE XP [Suspect]
     Active Substance: LIGHT MINERAL OIL\MINERAL OIL
     Indication: DRY EYE
     Dosage: ONE DROP IN EACH EYE AS NEEDED; FIVE YEARS AGO FROM THE DATE OF INITIAL REPORT
     Route: 047
     Dates: start: 2014
  6. COMBIGAN [Concomitant]
     Active Substance: BRIMONIDINE TARTRATE\TIMOLOL MALEATE
     Indication: PRODUCT USED FOR UNKNOWN INDICATION
     Route: 047
     Dates: start: 20190703
  7. SOOTHE XP [Suspect]
     Active Substance: LIGHT MINERAL OIL\MINERAL OIL
     Dosage: ONE DROP IN EACH EYE AS NEEDED
     Route: 047
     Dates: start: 20190703

REACTIONS (3)
  - Eye irritation [Not Recovered/Not Resolved]
  - Drug ineffective [Unknown]
  - Eye pain [Recovered/Resolved]

NARRATIVE: CASE EVENT DATE: 2019
